FAERS Safety Report 18957161 (Version 6)
Quarter: 2023Q1

REPORT INFORMATION
  Report Type: Report from Study
  Country: US (occurrence: None)
  Receive Date: 20210302
  Receipt Date: 20230322
  Transmission Date: 20230418
  Serious: Yes (Hospitalization)
  Sender: FDA-Public Use
  Company Number: US-ROCHE-2772812

PATIENT
  Age: 38 Year
  Sex: Female
  Weight: 76.2 kg

DRUGS (18)
  1. ATEZOLIZUMAB [Suspect]
     Active Substance: ATEZOLIZUMAB
     Indication: Triple negative breast cancer
     Dosage: LAST DOSE OF ATEZOLIZUMAB ADMINISTERED ON 08/FEB/2021
     Route: 041
     Dates: start: 20210122, end: 20210208
  2. EGANELISIB [Suspect]
     Active Substance: EGANELISIB
     Indication: Triple negative breast cancer
     Dosage: LAST DOSE OF IPI-549 ADMINISTERED ON 08/FEB/2021
     Route: 048
     Dates: start: 20210122, end: 20210208
  3. PACLITAXEL [Suspect]
     Active Substance: PACLITAXEL
     Indication: Triple negative breast cancer
     Dosage: LAST DOSE OF NAB-PACLITAXEL ADMINISTERED ON 08/FEB/2021
     Route: 042
     Dates: start: 20210122, end: 20210208
  4. TYLENOL [Concomitant]
     Active Substance: ACETAMINOPHEN
  5. CANNABIDIOL [Concomitant]
     Active Substance: CANNABIDIOL
  6. FLEXERIL [Concomitant]
     Active Substance: CYCLOBENZAPRINE HYDROCHLORIDE
  7. LOMOTIL [Concomitant]
     Active Substance: ATROPINE SULFATE\DIPHENOXYLATE HYDROCHLORIDE
  8. DURAGESIC [Concomitant]
     Active Substance: FENTANYL
  9. MOTRIN [Concomitant]
     Active Substance: IBUPROFEN
  10. CHRONULAC [Concomitant]
     Active Substance: LACTULOSE
  11. LMX (UNITED STATES) [Concomitant]
  12. REMERON [Concomitant]
     Active Substance: MIRTAZAPINE
  13. ZOFRAN [Concomitant]
     Active Substance: ONDANSETRON HYDROCHLORIDE
  14. OXYCODONE [Concomitant]
     Active Substance: OXYCODONE
  15. PERI-COLACE [Concomitant]
     Active Substance: CASANTHRANOL\DOCUSATE SODIUM
  16. PROMETHAZINE [Concomitant]
     Active Substance: PROMETHAZINE HYDROCHLORIDE
  17. FENTANYL [Concomitant]
     Active Substance: FENTANYL
  18. MORPHINE [Concomitant]
     Active Substance: MORPHINE

REACTIONS (2)
  - Transaminases increased [Recovered/Resolved]
  - Hepatic enzyme increased [Recovering/Resolving]

NARRATIVE: CASE EVENT DATE: 20210208
